FAERS Safety Report 20839190 (Version 1)
Quarter: 2022Q2

REPORT INFORMATION
  Report Type: Spontaneous
  Country: RU (occurrence: RU)
  Receive Date: 20220517
  Receipt Date: 20220517
  Transmission Date: 20220720
  Serious: Yes (Other)
  Sender: FDA-Public Use
  Company Number: RU-MLMSERVICE-20220505-3541255-1

PATIENT
  Age: 31 Year
  Sex: Male

DRUGS (3)
  1. METHOTREXATE [Suspect]
     Active Substance: METHOTREXATE
     Indication: Prophylaxis
     Dosage: PROPHYLACTIC ENDOLUMBAR INJECTIONS (UP TO 16)
  2. DEXAMETHASONE [Suspect]
     Active Substance: DEXAMETHASONE
     Indication: Prophylaxis
     Dosage: PROPHYLACTIC ENDOLUMBAR INJECTIONS (UP TO 16)
  3. CYTARABINE [Suspect]
     Active Substance: CYTARABINE
     Indication: Prophylaxis
     Dosage: PROPHYLACTIC ENDOLUMBAR INJECTIONS
     Dates: start: 20190520

REACTIONS (6)
  - Folate deficiency [Unknown]
  - Spinal cord injury [Unknown]
  - Polyneuropathy [Unknown]
  - Condition aggravated [Unknown]
  - Myelopathy [Unknown]
  - Intestinal obstruction [Recovered/Resolved]

NARRATIVE: CASE EVENT DATE: 20190101
